FAERS Safety Report 4743931-5 (Version None)
Quarter: 2005Q3

REPORT INFORMATION
  Report Type: 
  Country: None (occurrence: None)
  Receive Date: 20050812
  Receipt Date: 20050726
  Transmission Date: 20060218
  Serious: Yes (Other)
  Sender: FDA-Public Use
  Company Number: CA-ROCHE-412010

PATIENT
  Age: 30 Year
  Sex: Female

DRUGS (2)
  1. ACCUTANE [Suspect]
     Indication: ACNE
     Dosage: ALTERNATING DOSE OF 20MG AND 40MG DAILY.
     Route: 048
     Dates: start: 20050619, end: 20050715
  2. ACCUTANE [Suspect]
     Dosage: PATIENT RECEIVED TWO 40 MG CAPSULES ONCE DAILY
     Route: 048
     Dates: start: 20050715, end: 20050726

REACTIONS (3)
  - ARTHRALGIA [None]
  - BLISTER [None]
  - MYALGIA [None]
